FAERS Safety Report 11015895 (Version 2)
Quarter: 2015Q2

REPORT INFORMATION
  Report Type: Spontaneous
  Country: US (occurrence: US)
  Receive Date: 20150412
  Receipt Date: 20150525
  Transmission Date: 20150821
  Serious: No
  Sender: FDA-Public Use
  Company Number: US-JNJFOC-20140302890

PATIENT
  Age: 51 Year
  Sex: Female
  Weight: 80.74 kg

DRUGS (16)
  1. PREDNISONE. [Concomitant]
     Active Substance: PREDNISONE
     Route: 048
     Dates: start: 20140121
  2. CALCIUM [Concomitant]
     Active Substance: CALCIUM
     Route: 048
     Dates: start: 20121016
  3. PREDNISONE. [Concomitant]
     Active Substance: PREDNISONE
     Route: 048
     Dates: start: 20131017
  4. TYLENOL ARTHRITIS PAIN [Concomitant]
     Active Substance: ACETAMINOPHEN
     Route: 048
     Dates: start: 20120814
  5. VITAMIN D3 [Concomitant]
     Active Substance: CHOLECALCIFEROL
     Route: 048
     Dates: start: 20121016
  6. SIMPONI [Suspect]
     Active Substance: GOLIMUMAB
     Indication: ANKYLOSING SPONDYLITIS
     Route: 058
     Dates: start: 20140121
  7. METHOTREXATE [Concomitant]
     Active Substance: METHOTREXATE
     Route: 065
  8. CHONDROITIN [Concomitant]
     Active Substance: CHONDROITIN
     Route: 048
     Dates: start: 20121016
  9. MIGRANAL [Concomitant]
     Active Substance: DIHYDROERGOTAMINE MESYLATE
     Route: 045
     Dates: start: 20120814
  10. TORADOL [Concomitant]
     Active Substance: KETOROLAC TROMETHAMINE
     Route: 048
     Dates: start: 20120816
  11. KETOTIFEN FUMARATE. [Concomitant]
     Active Substance: KETOTIFEN FUMARATE
     Route: 047
     Dates: start: 20130718
  12. ENBREL [Concomitant]
     Active Substance: ETANERCEPT
     Route: 058
     Dates: start: 20130418
  13. FISH OIL [Concomitant]
     Active Substance: FISH OIL
     Route: 048
     Dates: start: 20121016
  14. IBUPROFEN. [Concomitant]
     Active Substance: IBUPROFEN
     Route: 048
  15. PRIMADOPHILUS [Concomitant]
     Route: 065
     Dates: start: 20120816
  16. MAGNESIUM [Concomitant]
     Active Substance: MAGNESIUM
     Route: 048
     Dates: start: 20121016

REACTIONS (6)
  - Anxiety [Unknown]
  - Hypokalaemia [Unknown]
  - Palpitations [Recovered/Resolved]
  - Dizziness [Recovered/Resolved]
  - Viral infection [Recovered/Resolved]
  - Contusion [Recovered/Resolved]

NARRATIVE: CASE EVENT DATE: 2014
